FAERS Safety Report 5420053-1 (Version None)
Quarter: 2007Q3

REPORT INFORMATION
  Report Type: 
  Country: None (occurrence: None)
  Receive Date: 20070820
  Receipt Date: 20070808
  Transmission Date: 20080115
  Serious: Yes (Other)
  Sender: FDA-Public Use
  Company Number: US-PFIZER INC-2007066677

PATIENT
  Sex: Male
  Weight: 104.54 kg

DRUGS (10)
  1. LYRICA [Suspect]
     Indication: NEURALGIA
  2. OMEPRAZOLE [Concomitant]
  3. AMIODARONE HCL [Concomitant]
  4. GLYBURIDE [Concomitant]
  5. METFORMIN HCL [Concomitant]
  6. FOSINOPRIL SODIUM [Concomitant]
  7. FELODIPINE [Concomitant]
  8. ZOCOR [Concomitant]
  9. LORAZEPAM [Concomitant]
  10. POTASSIUM CHLORIDE [Concomitant]

REACTIONS (5)
  - ABDOMINAL PAIN [None]
  - CHEST PAIN [None]
  - MALAISE [None]
  - NAUSEA [None]
  - PAIN [None]
